FAERS Safety Report 7324137-2 (Version None)
Quarter: 2011Q1

REPORT INFORMATION
  Report Type: 
  Country: None (occurrence: None)
  Receive Date: 20110301
  Receipt Date: 20110216
  Transmission Date: 20110831
  Serious: Yes (Hospitalization)
  Sender: FDA-Public Use
  Company Number: AT-MERCK-1102AUT00007

PATIENT
  Age: 46 Year
  Sex: Male

DRUGS (3)
  1. CANCIDAS [Suspect]
     Indication: CANDIDIASIS
     Route: 065
  2. ANIDULAFUNGIN [Suspect]
     Indication: CANDIDIASIS
     Route: 065
  3. CIPROFLOXACIN [Concomitant]
     Indication: LEGIONELLA INFECTION
     Route: 065

REACTIONS (4)
  - DRUG INEFFECTIVE [None]
  - SYSTEMIC CANDIDA [None]
  - CHOLESTASIS [None]
  - CHOLANGITIS SCLEROSING [None]
